FAERS Safety Report 9423277 (Version 4)
Quarter: 2013Q4

REPORT INFORMATION
  Report Type: Spontaneous
  Country: US (occurrence: US)
  Receive Date: 20130726
  Receipt Date: 20131014
  Transmission Date: 20140711
  Serious: Yes (Other)
  Sender: FDA-Public Use
  Company Number: US-TEVA-421236USA

PATIENT
  Sex: Female

DRUGS (1)
  1. CLONAZEPAM [Suspect]

REACTIONS (3)
  - Coeliac disease [Unknown]
  - Nausea [Recovering/Resolving]
  - Abdominal pain upper [Recovering/Resolving]
